FAERS Safety Report 7470800-2 (Version None)
Quarter: 2011Q2

REPORT INFORMATION
  Report Type: 
  Country: None (occurrence: None)
  Receive Date: 20110506
  Receipt Date: 20110506
  Transmission Date: 20111010
  Serious: Yes (Hospitalization)
  Sender: FDA-Public Use
  Company Number: None

PATIENT
  Age: 42 Year
  Sex: Female
  Weight: 63.5036 kg

DRUGS (1)
  1. KLONOPIN [Suspect]
     Dosage: 1 3X DAILY

REACTIONS (9)
  - ALOPECIA [None]
  - HAIR COLOUR CHANGES [None]
  - PRODUCT QUALITY ISSUE [None]
  - DEPENDENCE [None]
  - SUICIDE ATTEMPT [None]
  - PRODUCT LABEL ISSUE [None]
  - WITHDRAWAL SYNDROME [None]
  - TREMOR [None]
  - ANXIETY [None]
